FAERS Safety Report 8897120 (Version 1)
Quarter: 2012Q4

REPORT INFORMATION
  Report Type: Spontaneous
  Country: US (occurrence: None)
  Receive Date: 20121031
  Receipt Date: 20121031
  Transmission Date: 20130627
  Serious: Yes (Death, Other)
  Sender: FDA-Public Use
  Company Number: 2012MA012478

PATIENT
  Age: 32 Year
  Sex: Male

DRUGS (9)
  1. LEVETIRACETAM [Suspect]
     Route: 048
  2. DIAZEPAM [Suspect]
     Route: 048
  3. MIRTAZAPINE [Suspect]
     Route: 048
  4. OXAZEPAM [Suspect]
     Route: 048
  5. OXYCODONE HCL [Suspect]
     Route: 048
  6. OXYMORPHONE HYDROCHLORIDE [Suspect]
     Route: 048
  7. PREGABALIN [Suspect]
     Route: 048
  8. TEMAZEPAM [Suspect]
     Route: 048
  9. TRAZODONE HYDROCHLORIDE [Suspect]
     Route: 048

REACTIONS (4)
  - Brain injury [None]
  - Drug screen positive [None]
  - Toxicity to various agents [None]
  - Accidental death [None]
